FAERS Safety Report 9319509 (Version 2)
Quarter: 2013Q3

REPORT INFORMATION
  Report Type: Spontaneous
  Country: US (occurrence: US)
  Receive Date: 20130530
  Receipt Date: 20130925
  Transmission Date: 20140515
  Serious: Yes (Hospitalization)
  Sender: FDA-Public Use
  Company Number: US-GLAXOSMITHKLINE-A0993550A

PATIENT
  Age: 71 Year
  Sex: Female

DRUGS (2)
  1. FLOLAN [Suspect]
     Indication: COR PULMONALE CHRONIC
     Dosage: 51NGKM CONTINUOUS
     Route: 042
     Dates: start: 20080114
  2. WARFARIN [Concomitant]

REACTIONS (4)
  - Diarrhoea [Unknown]
  - Sinusitis [Unknown]
  - Middle ear effusion [Unknown]
  - Cardiac disorder [Unknown]
